FAERS Safety Report 24432076 (Version 1)
Quarter: 2024Q4

REPORT INFORMATION
  Report Type: Report from Study
  Country: ES (occurrence: ES)
  Receive Date: 20241014
  Receipt Date: 20241014
  Transmission Date: 20250114
  Serious: Yes (Life-Threatening, Hospitalization)
  Sender: ACCORD
  Company Number: None

PATIENT
  Age: 56 Year
  Sex: Female

DRUGS (12)
  1. CISPLATIN [Suspect]
     Active Substance: CISPLATIN
     Indication: Product used for unknown indication
     Dosage: 75MG/METER SQUARE
     Dates: start: 20231120
  2. DOXORUBICIN [Suspect]
     Active Substance: DOXORUBICIN
     Indication: Product used for unknown indication
     Dosage: 50-75MG/METER SQUARE
     Dates: start: 20231120
  3. CYCLOPHOSPHAMIDE [Suspect]
     Active Substance: CYCLOPHOSPHAMIDE
     Indication: Salivary gland neoplasm
     Dosage: 15MG/KG
     Dates: start: 20231120
  4. DEXAMETHASONE [Concomitant]
     Active Substance: DEXAMETHASONE
     Dosage: STRENGTH: 1 MG , 1 TABLET/24H
  5. ALPRAZOLAM [Concomitant]
     Active Substance: ALPRAZOLAM
     Dosage: STRENGTH: 0.5MG, ON DEMAND
  6. MORPHINE [Concomitant]
     Active Substance: MORPHINE
     Dosage: STRENGTH: 60 MG, 1 TABLET/12H
  7. DEFLAZACORT [Concomitant]
     Active Substance: DEFLAZACORT
     Dosage: STRENGTH: 30 MG, 1 TABLET/24H
  8. NETILMICIN [Concomitant]
     Active Substance: NETILMICIN
     Dosage: STRENGTH: 3MG/ML, 2 DROPS/24 HOURS (OPHTHALMICALLY)
  9. MONTELUKAST [Concomitant]
     Active Substance: MONTELUKAST
     Dosage: STRENGTH: 10 MG, 1 TABLET/24H
  10. FLUOROMETHOLONE ACETATE [Concomitant]
     Active Substance: FLUOROMETHOLONE ACETATE
     Dosage: STRENGTH: 1 MG/ML, 2 DROPS/24H
  11. KETAZOLAM [Concomitant]
     Active Substance: KETAZOLAM
     Dosage: STRENGTH: 15 MG, 1 CAPSULE/24H
  12. MORPHINE [Concomitant]
     Active Substance: MORPHINE
     Dosage: STRENGTH: 30 MG, 1 TABLET/12H

REACTIONS (1)
  - Agranulocytosis [Recovered/Resolved]

NARRATIVE: CASE EVENT DATE: 20231129
